FAERS Safety Report 16356890 (Version 2)
Quarter: 2019Q2

REPORT INFORMATION
  Report Type: Spontaneous
  Country: FR (occurrence: FR)
  Receive Date: 20190527
  Receipt Date: 20190607
  Transmission Date: 20190711
  Serious: Yes (Other)
  Sender: FDA-Public Use
  Company Number: FR-GLAXOSMITHKLINE-FR2019GSK094315

PATIENT
  Sex: Female
  Weight: 80 kg

DRUGS (3)
  1. NICOPATCH [Suspect]
     Active Substance: NICOTINE
     Dosage: 2 DF, QD
     Route: 062
     Dates: start: 20190304
  2. NICOPATCH [Suspect]
     Active Substance: NICOTINE
     Dosage: 3 DF, UNK
     Route: 062
     Dates: start: 20190521
  3. NICOPATCH [Suspect]
     Active Substance: NICOTINE
     Indication: SMOKING CESSATION THERAPY
     Dosage: 21 MG, QD
     Route: 062
     Dates: start: 201901

REACTIONS (3)
  - Nicotine dependence [Not Recovered/Not Resolved]
  - Prescribed overdose [Unknown]
  - Treatment noncompliance [Unknown]
